FAERS Safety Report 19564149 (Version 3)
Quarter: 2022Q3

REPORT INFORMATION
  Report Type: Spontaneous
  Country: US (occurrence: US)
  Receive Date: 20210714
  Receipt Date: 20220725
  Transmission Date: 20221026
  Serious: Yes (Other)
  Sender: FDA-Public Use
  Company Number: US-NOVARTISTESTPH-NVSC2020US225556

PATIENT
  Age: 76 Year
  Sex: Female

DRUGS (4)
  1. ALPELISIB [Suspect]
     Active Substance: ALPELISIB
     Indication: Breast cancer metastatic
     Dosage: 300 MG/KG, QD, TABLET
     Route: 048
     Dates: start: 20200717, end: 20200807
  2. ALPELISIB [Suspect]
     Active Substance: ALPELISIB
     Dosage: 300 MG, QD
     Route: 048
  3. ALPELISIB [Suspect]
     Active Substance: ALPELISIB
     Dosage: 250 MG, QD
     Route: 048
  4. ALPELISIB [Suspect]
     Active Substance: ALPELISIB
     Dosage: UNK, QD
     Route: 048

REACTIONS (3)
  - Rash [Recovered/Resolved]
  - Hyperglycaemia [Unknown]
  - Weight decreased [Unknown]

NARRATIVE: CASE EVENT DATE: 20200807
